FAERS Safety Report 23701363 (Version 10)
Quarter: 2024Q3

REPORT INFORMATION
  Report Type: Spontaneous
  Country: PL (occurrence: PL)
  Receive Date: 20240403
  Receipt Date: 20240919
  Transmission Date: 20241017
  Serious: Yes (Death, Hospitalization, Other)
  Sender: NOVARTIS
  Company Number: PL-002147023-NVSC2024PL070299

PATIENT
  Age: 30 Year
  Sex: Male

DRUGS (15)
  1. CYCLOSPORINE [Suspect]
     Active Substance: CYCLOSPORINE
     Indication: Prophylaxis against graft versus host disease
     Dosage: UNK
     Route: 065
  2. RUXOLITINIB [Suspect]
     Active Substance: RUXOLITINIB
     Indication: Chronic graft versus host disease
     Dosage: UNK
     Route: 048
  3. METHOTREXATE [Suspect]
     Active Substance: METHOTREXATE
     Indication: Prophylaxis against graft versus host disease
     Dosage: UNK
     Route: 065
  4. METHOTREXATE [Suspect]
     Active Substance: METHOTREXATE
     Indication: Graft versus host disease
  5. MYCOPHENOLATE MOFETIL [Suspect]
     Active Substance: MYCOPHENOLATE MOFETIL
     Indication: Graft versus host disease
     Dosage: UNK
     Route: 065
  6. AZITHROMYCIN [Suspect]
     Active Substance: AZITHROMYCIN
     Indication: Graft versus host disease
     Dosage: UNK
     Route: 065
  7. MONTELUKAST [Suspect]
     Active Substance: MONTELUKAST SODIUM
     Indication: Graft versus host disease
     Dosage: UNK
     Route: 065
  8. FLUTICASONE [Suspect]
     Active Substance: FLUTICASONE
     Indication: Chronic graft versus host disease
     Dosage: UNK
     Route: 065
  9. FLUTICASONE [Suspect]
     Active Substance: FLUTICASONE
     Indication: Graft versus host disease
  10. METHYLPREDNISOLONE [Suspect]
     Active Substance: METHYLPREDNISOLONE
     Indication: Graft versus host disease
     Dosage: UNK
     Route: 065
  11. MELPHALAN [Concomitant]
     Active Substance: MELPHALAN
     Indication: Product used for unknown indication
     Dosage: CONDITIONING
     Route: 065
  12. MELPHALAN [Concomitant]
     Active Substance: MELPHALAN
     Dosage: CONDITIONING
     Route: 065
  13. MELPHALAN [Concomitant]
     Active Substance: MELPHALAN
     Dosage: CONDITIONING
     Route: 065
  14. FLUDARABINE [Concomitant]
     Active Substance: FLUDARABINE PHOSPHATE
     Indication: Product used for unknown indication
     Dosage: CONDITIONING
     Route: 065
  15. FLUDARABINE [Concomitant]
     Active Substance: FLUDARABINE PHOSPHATE
     Dosage: CONDITIONING
     Route: 065

REACTIONS (12)
  - Chronic graft versus host disease [Fatal]
  - Disease progression [Fatal]
  - Erythema [Fatal]
  - Lichenoid keratosis [Fatal]
  - Mastication disorder [Fatal]
  - Dyspnoea [Fatal]
  - General physical health deterioration [Fatal]
  - Weight decreased [Fatal]
  - Pleural effusion [Fatal]
  - Pneumonia [Fatal]
  - Drug ineffective for unapproved indication [Unknown]
  - Product use in unapproved indication [Unknown]
